FAERS Safety Report 7079338-8 (Version None)
Quarter: 2010Q4

REPORT INFORMATION
  Report Type: 
  Country: None (occurrence: None)
  Receive Date: 20101102
  Receipt Date: 20100816
  Transmission Date: 20110411
  Serious: No
  Sender: FDA-Public Use
  Company Number: A0876109A

PATIENT
  Age: 72 Year
  Sex: Female

DRUGS (9)
  1. RYTHMOL SR [Suspect]
     Indication: ATRIAL FIBRILLATION
     Dosage: 225MG TWICE PER DAY
     Route: 048
     Dates: start: 20100811
  2. SYNTHROID [Concomitant]
  3. PRILOSEC [Concomitant]
  4. NORVASC [Concomitant]
  5. MAGNESIUM OXIDE [Concomitant]
  6. CALCIUM [Concomitant]
  7. CELEBREX [Concomitant]
  8. CYCLOSPORINE [Concomitant]
  9. CELLCEPT [Concomitant]

REACTIONS (2)
  - ASTHENIA [None]
  - FATIGUE [None]
